FAERS Safety Report 20109895 (Version 1)
Quarter: 2021Q4

REPORT INFORMATION
  Report Type: Spontaneous
  Country: US (occurrence: None)
  Receive Date: 20211124
  Receipt Date: 20211124
  Transmission Date: 20220303
  Serious: Yes (Other)
  Sender: FDA-Public Use
  Company Number: None

PATIENT
  Age: 60 Year
  Sex: Male
  Weight: 92.4 kg

DRUGS (2)
  1. OSELTAMIVIR [Suspect]
     Active Substance: OSELTAMIVIR
     Indication: Influenza
     Dosage: FREQUENCY : TWICE A DAY;?
     Route: 048
     Dates: start: 20211118, end: 20211122
  2. Discontinuation of drug [Concomitant]

REACTIONS (3)
  - Blood urine present [None]
  - Epistaxis [None]
  - Rectal haemorrhage [None]

NARRATIVE: CASE EVENT DATE: 20211122
